FAERS Safety Report 5149982-3 (Version None)
Quarter: 2006Q4

REPORT INFORMATION
  Report Type: 
  Country: None (occurrence: None)
  Receive Date: 20061108
  Receipt Date: 20061026
  Transmission Date: 20070319
  Serious: Yes (Hospitalization, Other)
  Sender: FDA-Public Use
  Company Number: 2006131903

PATIENT
  Age: 78 Year
  Sex: Female
  Weight: 70.3075 kg

DRUGS (5)
  1. NORVASC [Suspect]
     Indication: HYPERTENSION
     Dosage: 10 MG (10 MG, 1 IN 1 D), ORAL
     Route: 048
     Dates: start: 20010101
  2. GLUTAMATE SODIUM (GLUTAMINE SODIUM) [Suspect]
     Dates: start: 20061022, end: 20061022
  3. SYNTHROID [Concomitant]
  4. LOVASTATIN [Concomitant]
  5. ALL OTHER THERAPEUTIC PRODUCTS (ALL OTHER THERAPEUTIC PRODUCTS) [Concomitant]

REACTIONS (5)
  - COMA [None]
  - DIZZINESS [None]
  - FEELING HOT [None]
  - FOOD INTERACTION [None]
  - LOSS OF CONSCIOUSNESS [None]
